FAERS Safety Report 4648705-1 (Version None)
Quarter: 2005Q2

REPORT INFORMATION
  Report Type: 
  Country: None (occurrence: None)
  Receive Date: 20050427
  Receipt Date: 20050419
  Transmission Date: 20051028
  Serious: Yes (Hospitalization)
  Sender: FDA-Public Use
  Company Number: 200510410BVD

PATIENT
  Age: 75 Year
  Sex: Male

DRUGS (2)
  1. AVALOX (MOXIFLOXACIN HYDROCHLORIDE) [Suspect]
     Indication: CHRONIC OBSTRUCTIVE AIRWAYS DISEASE EXACERBATED
     Dosage: 400 MG, TOTAL DAILY, ORAL
     Route: 048
     Dates: start: 20050302, end: 20050304
  2. AVALOX (MOXIFLOXACIN HYDROCHLORIDE) [Suspect]
     Indication: INFECTION
     Dosage: 400 MG, TOTAL DAILY, ORAL
     Route: 048
     Dates: start: 20050302, end: 20050304

REACTIONS (8)
  - ALANINE AMINOTRANSFERASE INCREASED [None]
  - ASPARTATE AMINOTRANSFERASE INCREASED [None]
  - BLOOD ALKALINE PHOSPHATASE INCREASED [None]
  - BLOOD AMYLASE INCREASED [None]
  - HAEMOGLOBIN DECREASED [None]
  - JAUNDICE ACHOLURIC [None]
  - LIPASE INCREASED [None]
  - RED BLOOD CELL COUNT DECREASED [None]
